FAERS Safety Report 8037796-6 (Version None)
Quarter: 2012Q1

REPORT INFORMATION
  Report Type: 
  Country: None (occurrence: None)
  Receive Date: 20120105
  Receipt Date: 20111220
  Transmission Date: 20120608
  Serious: Yes (Life-Threatening, Hospitalization)
  Sender: FDA-Public Use
  Company Number: DSA_48596_2011

PATIENT
  Sex: Female

DRUGS (5)
  1. ELIDEL [Suspect]
     Indication: DERMATITIS ATOPIC
     Dosage: DF TOPICAL
     Route: 061
     Dates: start: 20090101, end: 20100601
  2. TRIAMCINOLONE [Concomitant]
  3. BLEACH BATHS [Concomitant]
  4. FLUORIDE [Concomitant]
  5. BACTRIM [Concomitant]

REACTIONS (1)
  - ACUTE LYMPHOCYTIC LEUKAEMIA [None]
